FAERS Safety Report 8168599-X (Version None)
Quarter: 2012Q1

REPORT INFORMATION
  Report Type: 
  Country: None (occurrence: None)
  Receive Date: 20120227
  Receipt Date: 20120227
  Transmission Date: 20120608
  Serious: Yes (Other)
  Sender: FDA-Public Use
  Company Number: None

PATIENT
  Age: 31 Year
  Sex: Female
  Weight: 62.595 kg

DRUGS (1)
  1. ACETAMINOPHEN [Suspect]
     Indication: PYREXIA
     Dosage: 500 MG EACH
     Route: 048
     Dates: start: 20120225, end: 20120225

REACTIONS (4)
  - PAIN IN EXTREMITY [None]
  - OEDEMA MOUTH [None]
  - OEDEMA PERIPHERAL [None]
  - HYPERSENSITIVITY [None]
